FAERS Safety Report 23127922 (Version 1)
Quarter: 2023Q4

REPORT INFORMATION
  Report Type: Report from Study
  Country: US (occurrence: US)
  Receive Date: 20231031
  Receipt Date: 20231031
  Transmission Date: 20240110
  Serious: Yes (Hospitalization)
  Sender: FDA-Public Use
  Company Number: US-ABBVIE-5452083

PATIENT
  Sex: Female

DRUGS (1)
  1. VENCLEXTA [Suspect]
     Active Substance: VENETOCLAX
     Indication: Chronic lymphocytic leukaemia
     Route: 048
     Dates: start: 202303

REACTIONS (6)
  - Urinary tract infection [Unknown]
  - Swelling [Unknown]
  - Blood potassium decreased [Unknown]
  - Wound [Unknown]
  - Blood magnesium decreased [Unknown]
  - Poor quality sleep [Unknown]

NARRATIVE: CASE EVENT DATE: 20230101
